FAERS Safety Report 6318074-X (Version None)
Quarter: 2009Q3

REPORT INFORMATION
  Report Type: 
  Country: None (occurrence: None)
  Receive Date: 20090821
  Receipt Date: 20090812
  Transmission Date: 20100115
  Serious: Yes (Death, Life-Threatening, Hospitalization)
  Sender: FDA-Public Use
  Company Number: US-ABBOTT-08P-163-0474341-07

PATIENT
  Sex: Female

DRUGS (15)
  1. HUMIRA [Suspect]
     Indication: RHEUMATOID ARTHRITIS
     Route: 058
     Dates: start: 20010104, end: 20080717
  2. ATENOLOL [Concomitant]
     Indication: HYPERTENSION
     Route: 048
     Dates: start: 19900101
  3. ZOCOR [Concomitant]
     Indication: HYPERCHOLESTEROLAEMIA
     Route: 048
     Dates: start: 19900101
  4. EFFEXOR XR [Concomitant]
     Indication: DEPRESSION
     Route: 048
     Dates: start: 20031007
  5. CALCIUM [Concomitant]
     Indication: MINERAL SUPPLEMENTATION
     Route: 048
     Dates: start: 20020810
  6. BENADRYL [Concomitant]
     Indication: PRURITUS
     Route: 048
     Dates: start: 20031008, end: 20031215
  7. COZAAR [Concomitant]
     Indication: HYPERTENSION
     Route: 048
     Dates: start: 20020220
  8. MIRLAX [Concomitant]
     Indication: CONSTIPATION
     Dosage: 1 TABLESPOON
     Route: 048
     Dates: start: 20050825
  9. FENTANYL [Concomitant]
     Indication: BACK PAIN
     Route: 062
     Dates: start: 20060616
  10. MACUGEN [Concomitant]
     Indication: MACULAR DEGENERATION
     Dates: start: 20070604
  11. VICODIN [Concomitant]
     Indication: ARTHRALGIA
     Route: 048
     Dates: start: 20080110
  12. RECLAST [Concomitant]
     Indication: OSTEOPOROSIS
     Dates: start: 20080519
  13. ACTOS [Concomitant]
     Indication: DIABETES MELLITUS
     Route: 048
     Dates: start: 20040611
  14. CELEBREX [Concomitant]
     Indication: RHEUMATOID ARTHRITIS
     Route: 048
     Dates: start: 19990205
  15. PREDNISONE [Concomitant]
     Indication: RHEUMATOID ARTHRITIS
     Route: 048
     Dates: start: 20070801

REACTIONS (4)
  - ATRIAL FIBRILLATION [None]
  - MYOCARDIAL INFARCTION [None]
  - SEPSIS [None]
  - URINARY TRACT INFECTION [None]
